FAERS Safety Report 9759179 (Version 1)
Quarter: 2013Q4

REPORT INFORMATION
  Report Type: Spontaneous
  Country: US (occurrence: US)
  Receive Date: 20131216
  Receipt Date: 20131216
  Transmission Date: 20140711
  Serious: Yes (Other)
  Sender: FDA-Public Use
  Company Number: US-009507513-1312USA004495

PATIENT
  Sex: Male

DRUGS (1)
  1. INVANZ [Suspect]
     Indication: LOCALISED INFECTION
     Dosage: UNK

REACTIONS (1)
  - Convulsion [Recovered/Resolved]
